FAERS Safety Report 19768916 (Version 1)
Quarter: 2021Q3

REPORT INFORMATION
  Report Type: Spontaneous
  Country: US (occurrence: US)
  Receive Date: 20210831
  Receipt Date: 20210831
  Transmission Date: 20211014
  Serious: No
  Sender: FDA-Public Use
  Company Number: US-TEVA-2021-US-1945687

PATIENT
  Sex: Female

DRUGS (8)
  1. NEXIUM [Concomitant]
     Active Substance: ESOMEPRAZOLE MAGNESIUM
  2. FLUDROCORTISONE ACETATE. [Concomitant]
     Active Substance: FLUDROCORTISONE ACETATE
     Dosage: .2 MILLIGRAM DAILY;
     Route: 048
     Dates: start: 20190724
  3. AUSTEDO [Suspect]
     Active Substance: DEUTETRABENAZINE
     Indication: TARDIVE DYSKINESIA
     Dosage: 36 MILLIGRAM DAILY;
     Route: 048
     Dates: start: 20210719
  4. MIRTAZAPINE. [Concomitant]
     Active Substance: MIRTAZAPINE
     Dosage: 7.5 MILLIGRAM DAILY; AT NIGHT
     Route: 048
     Dates: start: 20191219
  5. ALEVE [Concomitant]
     Active Substance: NAPROXEN SODIUM
  6. LIPITOR [Concomitant]
     Active Substance: ATORVASTATIN CALCIUM
     Route: 048
  7. AUSTEDO [Suspect]
     Active Substance: DEUTETRABENAZINE
     Dosage: 24 MILLIGRAM DAILY;
     Route: 048
     Dates: start: 20210719, end: 20210719
  8. OXYBUTYNIN CHLORIDE ER [Concomitant]
     Active Substance: OXYBUTYNIN CHLORIDE
     Dosage: 5 MILLIGRAM DAILY;
     Route: 048

REACTIONS (17)
  - Aphasia [Unknown]
  - Hyperlipidaemia [Unknown]
  - Orthostatic hypotension [Unknown]
  - Pseudodementia [Unknown]
  - Ataxia [Unknown]
  - Gastrooesophageal reflux disease [Unknown]
  - Factitious disorder [Unknown]
  - Depression [Unknown]
  - Insomnia [Recovering/Resolving]
  - Persistent depressive disorder [Unknown]
  - Paraesthesia [Unknown]
  - Vitamin B complex deficiency [Unknown]
  - Peroneal nerve palsy [Unknown]
  - Balance disorder [Unknown]
  - Speech disorder [Unknown]
  - Anxiety [Unknown]
  - Hypoaesthesia [Unknown]

NARRATIVE: CASE EVENT DATE: 2021
